FAERS Safety Report 16903343 (Version 1)
Quarter: 2019Q4

REPORT INFORMATION
  Report Type: Spontaneous
  Country: US (occurrence: US)
  Receive Date: 20191010
  Receipt Date: 20191010
  Transmission Date: 20200122
  Serious: Yes (Hospitalization)
  Sender: FDA-Public Use
  Company Number: US-B.I. PHARMACEUTICALS,INC./RIDGEFIELD-2019-US-106086

PATIENT
  Age: 61 Year
  Sex: Female

DRUGS (1)
  1. GLYXAMBI [Suspect]
     Active Substance: EMPAGLIFLOZIN\LINAGLIPTIN
     Indication: TYPE 2 DIABETES MELLITUS
     Dosage: 10/5MG ONCE DAILY
     Route: 065
     Dates: start: 201606, end: 201610

REACTIONS (10)
  - Abdominal pain upper [Recovered/Resolved]
  - Gadolinium deposition disease [Unknown]
  - Intervertebral disc protrusion [Unknown]
  - Lyme disease [Unknown]
  - Skin disorder [Unknown]
  - Pain [Recovered/Resolved]
  - Rocky mountain spotted fever [Unknown]
  - Headache [Recovered/Resolved]
  - Red blood cell abnormality [Unknown]
  - Gait inability [Unknown]

NARRATIVE: CASE EVENT DATE: 201606
